FAERS Safety Report 4862103-7 (Version None)
Quarter: 2005Q4

REPORT INFORMATION
  Report Type: 
  Country: None (occurrence: None)
  Receive Date: 20051221
  Receipt Date: 20051209
  Transmission Date: 20060501
  Serious: Yes (Disabling)
  Sender: FDA-Public Use
  Company Number: JP-BOEHRINGER INGELHEIM PHARMACEUTICALS, INC.-2005-DE-05540GL

PATIENT
  Sex: Male

DRUGS (9)
  1. TELMISARTAN [Suspect]
     Indication: HYPERTENSION
     Route: 048
     Dates: start: 20040306
  2. PAROXETINE HYDROCHLORIDE [Suspect]
     Indication: DEPRESSION
     Route: 048
     Dates: start: 20040522, end: 20051129
  3. PIOGLITAZONE HCL [Suspect]
     Indication: DIABETES MELLITUS
     Route: 048
     Dates: start: 20040903
  4. GLIMEPIRIDE [Suspect]
     Indication: DIABETES MELLITUS
     Route: 048
     Dates: start: 20040819
  5. CLOTIAZEPAM [Suspect]
     Indication: ANXIETY DISORDER
     Route: 048
     Dates: start: 20040508
  6. VALSARTAN [Concomitant]
  7. VOGLIBOSE [Concomitant]
  8. TOCOPHERYL NICOTINATE [Concomitant]
     Dates: start: 20041211
  9. HACHIMI-JIO-GAN [Concomitant]
     Dates: start: 20041211

REACTIONS (1)
  - DEPRESSED LEVEL OF CONSCIOUSNESS [None]
